FAERS Safety Report 22643533 (Version 1)
Quarter: 2023Q2

REPORT INFORMATION
  Report Type: Spontaneous
  Country: FR (occurrence: FR)
  Receive Date: 20230627
  Receipt Date: 20230627
  Transmission Date: 20230722
  Serious: Yes (Other)
  Sender: FDA-Public Use
  Company Number: FR-CELLTRION INC.-2023FR012673

PATIENT

DRUGS (4)
  1. TRASTUZUMAB [Suspect]
     Active Substance: TRASTUZUMAB
     Indication: HER2 positive breast cancer
     Dosage: INITIATED AT 16 WG TO 29 WG; GESTATION PERIOD AT TIME OF EXPOSURE: 2 {TRIMESTER}
     Route: 065
  2. CYCLOPHOSPHAMIDE [Suspect]
     Active Substance: CYCLOPHOSPHAMIDE
     Indication: HER2 positive breast cancer
     Dosage: UNK, CYCLIC (FROM 4 WG 3 CYCLES, UNTIL 10 WG); GESTATION PERIOD AT TIME OF EXPOSURE: 1 {TRIMESTER}
     Route: 065
  3. EPIRUBICIN [Suspect]
     Active Substance: EPIRUBICIN
     Indication: HER2 positive breast cancer
     Dosage: UNK, CYCLIC (FROM 4 WG 3 CYCLES, UNTIL 10 WG); GESTATION PERIOD AT TIME OF EXPOSURE: 1 {TRIMESTER}
     Route: 065
  4. PACLITAXEL [Suspect]
     Active Substance: PACLITAXEL
     Indication: HER2 positive breast cancer
     Dosage: WEEKLY INJECTION (INITIATED AT 16 WG TO 29 WG); GESTATION PERIOD AT TIME OF EXPOSURE: 2 {TRIMESTER}

REACTIONS (3)
  - Oligohydramnios [Unknown]
  - Maternal exposure during pregnancy [Unknown]
  - Contraindicated product administered [Unknown]
